FAERS Safety Report 7184230-4 (Version None)
Quarter: 2010Q4

REPORT INFORMATION
  Report Type: 
  Country: None (occurrence: None)
  Receive Date: 20101222
  Receipt Date: 20101207
  Transmission Date: 20110411
  Serious: Yes (Death)
  Sender: FDA-Public Use
  Company Number: GB-BAUSCH-2010BL006972

PATIENT
  Age: 14 Year
  Sex: Male

DRUGS (4)
  1. PREDNISOLONE [Suspect]
     Indication: B-CELL LYMPHOMA
     Dates: start: 20090101, end: 20090101
  2. CYCLOPHOSPHAMIDE [Suspect]
     Indication: B-CELL LYMPHOMA
     Dates: start: 20090101, end: 20090101
  3. METHOTREXATE [Suspect]
     Indication: B-CELL LYMPHOMA
     Dates: start: 20090101, end: 20090101
  4. VINCRISTINE [Suspect]
     Indication: B-CELL LYMPHOMA
     Dates: start: 20090101, end: 20090101

REACTIONS (3)
  - CANDIDA SEPSIS [None]
  - ILEAL PERFORATION [None]
  - PERITONITIS [None]
